FAERS Safety Report 4523256-3 (Version None)
Quarter: 2004Q4

REPORT INFORMATION
  Report Type: 
  Country: None (occurrence: None)
  Receive Date: 20041206
  Receipt Date: 20041119
  Transmission Date: 20050328
  Serious: Yes (Hospitalization)
  Sender: FDA-Public Use
  Company Number: 601648

PATIENT
  Age: 10 Month
  Sex: Male

DRUGS (2)
  1. ADVATE           (ANTIHEMOPHILIC FACTOR (RECOMBINANT), PLASMA/ALBUMIN [Suspect]
     Indication: FACTOR VIII DEFICIENCY
     Dosage: 500 IU; PRN
     Dates: start: 20040929
  2. ADVATE (ANTIHEMOPHILIC FACTOR (RECOMBINANT), PLASMA/ALBUMIN FREE METHO [Suspect]

REACTIONS (1)
  - FACTOR VIII INHIBITION [None]
